FAERS Safety Report 9275865 (Version 1)
Quarter: 2013Q2

REPORT INFORMATION
  Report Type: Spontaneous
  Country: US (occurrence: US)
  Receive Date: 20130507
  Receipt Date: 20130507
  Transmission Date: 20140414
  Serious: Yes (Death)
  Sender: FDA-Public Use
  Company Number: US-PFIZER INC-2013140087

PATIENT
  Age: 90 Year
  Sex: Female

DRUGS (3)
  1. NORVASC [Suspect]
     Indication: BLOOD PRESSURE ABNORMAL
     Dosage: 5 MG, UNK
  2. ZOLOFT [Suspect]
     Dosage: 50 MG, UNK
  3. ANTIVERT [Suspect]
     Dosage: 25 MG, UNK

REACTIONS (1)
  - Myocardial infarction [Fatal]
